FAERS Safety Report 20629562 (Version 3)
Quarter: 2022Q2

REPORT INFORMATION
  Report Type: Report from Study
  Country: US (occurrence: US)
  Receive Date: 20220323
  Receipt Date: 20220621
  Transmission Date: 20220720
  Serious: No
  Sender: FDA-Public Use
  Company Number: US-ORGANON-O2203USA001103

PATIENT
  Age: 21 Year
  Sex: Female
  Weight: 81.995 kg

DRUGS (1)
  1. IMPLANON [Suspect]
     Active Substance: ETONOGESTREL
     Indication: Contraception
     Dosage: 1 IMPLANT IN LEFT UPPER ARM; STRENGTH 68 MILLIGRAM (DOSE/FREQUENCY REPORTED AS 68 MILLIGRAM)
     Route: 059
     Dates: start: 20220308, end: 20220308

REACTIONS (4)
  - Complication of device insertion [Recovered/Resolved]
  - Device placement issue [Unknown]
  - Product quality issue [Unknown]
  - No adverse event [Unknown]

NARRATIVE: CASE EVENT DATE: 20220308
